FAERS Safety Report 5448679-X (Version None)
Quarter: 2007Q3

REPORT INFORMATION
  Report Type: 
  Country: None (occurrence: None)
  Receive Date: 20070911
  Receipt Date: 20070830
  Transmission Date: 20080115
  Serious: Yes (Life-Threatening)
  Sender: FDA-Public Use
  Company Number: A0643133B

PATIENT
  Sex: Male
  Weight: 2.9 kg

DRUGS (5)
  1. AEROLIN [Suspect]
     Indication: PROPHYLAXIS
     Dates: start: 20070216, end: 20070319
  2. AEROLIN [Suspect]
     Dosage: 4MG FOUR TIMES PER DAY
     Dates: start: 20070219, end: 20070302
  3. FERROUS SULFATE TAB [Concomitant]
     Dates: start: 20061101
  4. ASPIRIN [Concomitant]
     Dates: start: 20060901
  5. ACETAMINOPHEN [Concomitant]
     Indication: HEADACHE

REACTIONS (2)
  - CONVULSION [None]
  - VOMITING [None]
